FAERS Safety Report 14740520 (Version 1)
Quarter: 2018Q2

REPORT INFORMATION
  Report Type: Spontaneous
  Country: DK (occurrence: DK)
  Receive Date: 20180410
  Receipt Date: 20180410
  Transmission Date: 20180711
  Serious: Yes (Hospitalization)
  Sender: FDA-Public Use
  Company Number: DK-TEVA-2018-DK-879434

PATIENT
  Age: 71 Year
  Sex: Male

DRUGS (3)
  1. AMLODIPINE [Interacting]
     Active Substance: AMLODIPINE BESYLATE
     Route: 065
  2. SIMVASTATIN. [Suspect]
     Active Substance: SIMVASTATIN
     Route: 065
  3. ROXITHROMYCIN [Interacting]
     Active Substance: ROXITHROMYCIN
     Route: 065

REACTIONS (4)
  - Rhabdomyolysis [Unknown]
  - Myopathy [Unknown]
  - Walking disability [Unknown]
  - Drug interaction [Unknown]
